FAERS Safety Report 17755575 (Version 2)
Quarter: 2022Q1

REPORT INFORMATION
  Report Type: Spontaneous
  Country: US (occurrence: US)
  Receive Date: 20200507
  Receipt Date: 20220331
  Transmission Date: 20220424
  Serious: No
  Sender: FDA-Public Use
  Company Number: US-PFIZER INC-2020181328

PATIENT
  Age: 69 Year
  Sex: Female
  Weight: 62.6 kg

DRUGS (4)
  1. IBRANCE [Suspect]
     Active Substance: PALBOCICLIB
     Indication: Neoplasm malignant
     Dosage: 125 MG, CYCLIC (125MG EVERY DAY FOR 21 DAYS, OFF FOR 7 DAYS)
     Route: 048
     Dates: start: 201910
  2. IBRANCE [Suspect]
     Active Substance: PALBOCICLIB
     Indication: Breast cancer metastatic
  3. LETROZOLE [Suspect]
     Active Substance: LETROZOLE
     Indication: Neoplasm malignant
     Dosage: 2.5 MG, 1X/DAY (2.5MG EVERY NIGHT BY MOUTH)
     Route: 048
     Dates: start: 201910
  4. LETROZOLE [Suspect]
     Active Substance: LETROZOLE
     Indication: Breast cancer metastatic

REACTIONS (12)
  - Lacrimation increased [Recovering/Resolving]
  - Eyelids pruritus [Not Recovered/Not Resolved]
  - Hypersensitivity [Not Recovered/Not Resolved]
  - Visual impairment [Unknown]
  - Stomatitis [Recovering/Resolving]
  - Lip pain [Recovering/Resolving]
  - Throat tightness [Unknown]
  - Dysphonia [Unknown]
  - Dysphagia [Unknown]
  - White blood cell count decreased [Unknown]
  - Contusion [Unknown]
  - Skin atrophy [Unknown]

NARRATIVE: CASE EVENT DATE: 20191201
